FAERS Safety Report 8976903 (Version 1)
Quarter: 2012Q4

REPORT INFORMATION
  Report Type: 
  Country: US (occurrence: US)
  Receive Date: 20121218
  Receipt Date: 20121218
  Transmission Date: 20130627
  Serious: No
  Sender: FDA-Public Use
  Company Number: US-PFIZER INC-2012316660

PATIENT
  Sex: Female

DRUGS (4)
  1. XANAX [Suspect]
     Dosage: 0.25 mg, UNK
  2. LIPITOR [Interacting]
     Dosage: UNK
  3. TOVIAZ [Interacting]
     Dosage: UNK
  4. CELEXA [Interacting]
     Dosage: 10 mg, UNK

REACTIONS (4)
  - Drug interaction [Unknown]
  - Chills [Unknown]
  - Feeling cold [Unknown]
  - Hyperhidrosis [Unknown]
